FAERS Safety Report 24222126 (Version 1)
Quarter: 2024Q3

REPORT INFORMATION
  Report Type: Other
  Country: PT (occurrence: PT)
  Receive Date: 20240819
  Receipt Date: 20240819
  Transmission Date: 20241017
  Serious: Yes (Other)
  Sender: ASPEN
  Company Number: PT-MEDINFARP-2024-0180

PATIENT

DRUGS (12)
  1. DEXAMETHASONE SODIUM PHOSPHATE [Suspect]
     Active Substance: DEXAMETHASONE PHOSPHATE\DEXAMETHASONE SODIUM PHOSPHATE
     Indication: Plasma cell myeloma
     Dosage: VCD PROTOCOL (BORTEZOMIB, CYCLOPHOSPHAMIDE AND DEXAMETHASONE)
     Route: 065
     Dates: start: 2017
  2. DEXAMETHASONE SODIUM PHOSPHATE [Suspect]
     Active Substance: DEXAMETHASONE PHOSPHATE\DEXAMETHASONE SODIUM PHOSPHATE
     Dosage: INCREASING THE DOSE OF LENALIDOMIDE AND ADDING DEXAMETHASONE
     Route: 065
     Dates: start: 2018
  3. DEXAMETHASONE SODIUM PHOSPHATE [Suspect]
     Active Substance: DEXAMETHASONE PHOSPHATE\DEXAMETHASONE SODIUM PHOSPHATE
     Dosage: THE DPD COMBINATION (DARATUMUMAB, POMALIDOMIDE AND DEXAMETHASONE), WHICH WAS STARTED IN NOVEMBER 201
     Route: 065
     Dates: start: 201911
  4. DEXAMETHASONE SODIUM PHOSPHATE [Suspect]
     Active Substance: DEXAMETHASONE PHOSPHATE\DEXAMETHASONE SODIUM PHOSPHATE
     Dosage: STARTED KCD (CARFILZOMIB, CYCLOPHOSPHAMIDE, AND DEXAMETHASONE) IN APRIL 2020, WHICH SHE MAINTAINED F
     Route: 065
     Dates: start: 202004
  5. CARFILZOMIB [Suspect]
     Active Substance: CARFILZOMIB
     Indication: Plasma cell myeloma
     Dosage: STARTED KCD (CARFILZOMIB, CYCLOPHOSPHAMIDE, AND DEXAMETHASONE) IN APRIL 2020, WHICH SHE MAINTAINED F
     Route: 065
     Dates: start: 202004
  6. POMALIDOMIDE [Suspect]
     Active Substance: POMALIDOMIDE
     Indication: Plasma cell myeloma
     Dosage: THE DPD COMBINATION (DARATUMUMAB, POMALIDOMIDE AND DEXAMETHASONE), WHICH WAS STARTED IN NOVEMBER 201
     Route: 065
     Dates: start: 201911
  7. BORTEZOMIB [Suspect]
     Active Substance: BORTEZOMIB
     Indication: Plasma cell myeloma
     Dosage: VCD PROTOCOL (BORTEZOMIB, CYCLOPHOSPHAMIDE AND DEXAMETHASONE)
     Route: 065
     Dates: start: 2017
  8. MELPHALAN [Suspect]
     Active Substance: MELPHALAN
     Indication: Plasma cell myeloma
     Dosage: UNK
     Route: 065
     Dates: start: 201804
  9. DARATUMUMAB [Suspect]
     Active Substance: DARATUMUMAB
     Indication: Plasma cell myeloma
     Dosage: THE DPD COMBINATION (DARATUMUMAB, POMALIDOMIDE AND DEXAMETHASONE), WHICH WAS STARTED IN NOVEMBER 201
     Route: 065
     Dates: start: 201911
  10. LENALIDOMIDE [Suspect]
     Active Substance: LENALIDOMIDE
     Indication: Plasma cell myeloma
     Dosage: UNK
     Route: 065
     Dates: start: 201804
  11. CYCLOPHOSPHAMIDE [Suspect]
     Active Substance: CYCLOPHOSPHAMIDE
     Indication: Plasma cell myeloma
     Dosage: VCD PROTOCOL (BORTEZOMIB, CYCLOPHOSPHAMIDE AND DEXAMETHASONE)
     Route: 065
     Dates: start: 2017
  12. CYCLOPHOSPHAMIDE [Suspect]
     Active Substance: CYCLOPHOSPHAMIDE
     Dosage: STARTED KCD (CARFILZOMIB, CYCLOPHOSPHAMIDE, AND DEXAMETHASONE) IN APRIL 2020, WHICH SHE MAINTAINED F
     Route: 065
     Dates: start: 202004

REACTIONS (3)
  - Neuropathy peripheral [Unknown]
  - Asthenia [Unknown]
  - Hypertension [Unknown]
